FAERS Safety Report 23172983 (Version 3)
Quarter: 2023Q4

REPORT INFORMATION
  Report Type: Other
  Country: None (occurrence: IT)
  Receive Date: 20231110
  Receipt Date: 20231227
  Transmission Date: 20240110
  Serious: Yes (Death, Life-Threatening, Hospitalization, Other)
  Sender: FDA-Public Use
  Company Number: IT-MLMSERVICE-20231023-4617936-1

PATIENT
  Age: 72 Year
  Sex: Male
  Weight: 67 kg

DRUGS (3)
  1. NITROUS OXIDE [Suspect]
     Active Substance: NITROUS OXIDE
     Indication: Medication error
     Route: 055
  2. LIDOCAINE [Concomitant]
     Active Substance: LIDOCAINE
  3. NAROPIN [Concomitant]
     Active Substance: ROPIVACAINE HYDROCHLORIDE

REACTIONS (17)
  - Cardiac arrest [Fatal]
  - Left ventricular hypertrophy [Fatal]
  - Loss of consciousness [Fatal]
  - Dilatation ventricular [Fatal]
  - Cerebral arteriosclerosis [Fatal]
  - Brain oedema [Fatal]
  - Emphysema [Fatal]
  - Cardiopulmonary failure [Fatal]
  - Ventricular extrasystoles [Fatal]
  - Cerebral ischaemia [Fatal]
  - Pulmonary alveolar haemorrhage [Fatal]
  - Brain hypoxia [Fatal]
  - Cardiogenic shock [Fatal]
  - Myocardial hypoxia [Fatal]
  - Cerebral reperfusion injury [Fatal]
  - Coma [Fatal]
  - Pulmonary congestion [Fatal]
